FAERS Safety Report 21251777 (Version 2)
Quarter: 2024Q4

REPORT INFORMATION
  Report Type: Report from Study
  Country: IT (occurrence: None)
  Receive Date: 20220825
  Receipt Date: 20241028
  Transmission Date: 20250115
  Serious: Yes (Other)
  Sender: ISTITUTO BICHIMICO ITALIANO GIOVANNI LORENZINI (IBIGEN)
  Company Number: None

PATIENT
  Age: 1 Month
  Sex: Male

DRUGS (1)
  1. AMPICILLIN SODIUM\SULBACTAM SODIUM [Suspect]
     Active Substance: AMPICILLIN SODIUM\SULBACTAM SODIUM
     Indication: Urosepsis
     Dosage: ()
     Dates: start: 20210426, end: 20210505

REACTIONS (1)
  - Neutropenia [Unknown]

NARRATIVE: CASE EVENT DATE: 20210428
